FAERS Safety Report 25072654 (Version 1)
Quarter: 2025Q1

REPORT INFORMATION
  Report Type: Spontaneous
  Country: US (occurrence: US)
  Receive Date: 20250313
  Receipt Date: 20250313
  Transmission Date: 20250408
  Serious: No
  Sender: MERCK SHARP & DOHME LLC
  Company Number: US-009507513-2263951

PATIENT
  Sex: Male

DRUGS (6)
  1. JANUMET XR [Suspect]
     Active Substance: METFORMIN HYDROCHLORIDE\SITAGLIPTIN PHOSPHATE
     Indication: Glycosylated haemoglobin
     Route: 048
     Dates: start: 2024
  2. LISINOPRIL [Concomitant]
     Active Substance: LISINOPRIL
     Indication: Blood pressure measurement
  3. OMEPRAZOLE [Concomitant]
     Active Substance: OMEPRAZOLE
  4. ROSTATIN [Concomitant]
  5. vitamins (D, B12, fish oil) [Concomitant]
  6. TICE BCG [Suspect]
     Active Substance: BACILLUS CALMETTE-GUERIN SUBSTRAIN TICE LIVE ANTIGEN
     Indication: Tumour treating fields therapy

REACTIONS (5)
  - Ephelides [Not Recovered/Not Resolved]
  - Blister [Not Recovered/Not Resolved]
  - Rash macular [Not Recovered/Not Resolved]
  - Blister [Not Recovered/Not Resolved]
  - Rash macular [Not Recovered/Not Resolved]

NARRATIVE: CASE EVENT DATE: 20240101
